FAERS Safety Report 22300659 (Version 1)
Quarter: 2023Q2

REPORT INFORMATION
  Report Type: Spontaneous
  Country: None (occurrence: US)
  Receive Date: 20230509
  Receipt Date: 20230509
  Transmission Date: 20230722
  Serious: Yes (Hospitalization)
  Sender: FDA-Public Use
  Company Number: US-Rite Aid Corporation-2141303

PATIENT
  Age: 3 Year
  Sex: Female

DRUGS (1)
  1. ISOPROPYL ALCOHOL [Suspect]
     Active Substance: ISOPROPYL ALCOHOL
     Indication: Arthropod bite
     Route: 061

REACTIONS (2)
  - Blister [None]
  - Application site burn [None]
